FAERS Safety Report 15011667 (Version 8)
Quarter: 2019Q2

REPORT INFORMATION
  Report Type: Report from Study
  Country: US (occurrence: US)
  Receive Date: 20180614
  Receipt Date: 20190614
  Transmission Date: 20190711
  Serious: Yes (Congenital Anomaly, Other)
  Sender: FDA-Public Use
  Company Number: US-TEVA-2018-US-905212

PATIENT
  Sex: Female
  Weight: 3 kg

DRUGS (3)
  1. RIBAVIRIN. [Suspect]
     Active Substance: RIBAVIRIN
     Dosage: 1200 MILLIGRAM DAILY; THE SUSPECT MEDICATION WAS TAKEN BY FATHER, ORALLY FROM 21-MAR-2016 TO 13-JUN-
     Route: 065
     Dates: start: 20160321, end: 20160613
  2. KENALOG [Suspect]
     Active Substance: TRIAMCINOLONE ACETONIDE
     Route: 064
  3. STELARA [Suspect]
     Active Substance: USTEKINUMAB
     Route: 064

REACTIONS (6)
  - Cough [Unknown]
  - Live birth [Unknown]
  - Rash [Unknown]
  - Paternal exposure timing unspecified [Unknown]
  - Developmental hip dysplasia [Unknown]
  - Respiratory disorder [Unknown]

NARRATIVE: CASE EVENT DATE: 2017
